FAERS Safety Report 15689318 (Version 1)
Quarter: 2018Q4

REPORT INFORMATION
  Report Type: Spontaneous
  Country: US (occurrence: US)
  Receive Date: 20181204
  Receipt Date: 20181204
  Transmission Date: 20190205
  Serious: Yes (Hospitalization)
  Sender: FDA-Public Use
  Company Number: None

PATIENT
  Age: 51 Year
  Sex: Female

DRUGS (2)
  1. HUMIRA [Suspect]
     Active Substance: ADALIMUMAB
     Indication: RHEUMATOID ARTHRITIS
     Dosage: ?          OTHER FREQUENCY:EVERY 2 WEEKS;?
     Route: 058
     Dates: start: 20180417, end: 20181203
  2. METHOTREXATE 2.5MG TABS [Concomitant]

REACTIONS (3)
  - Alopecia [None]
  - Pneumonia [None]
  - Burning sensation [None]

NARRATIVE: CASE EVENT DATE: 20181203
